FAERS Safety Report 7001172-5 (Version None)
Quarter: 2010Q3

REPORT INFORMATION
  Report Type: 
  Country: None (occurrence: None)
  Receive Date: 20100920
  Receipt Date: 20091217
  Transmission Date: 20110219
  Serious: Yes (Other)
  Sender: FDA-Public Use
  Company Number: US-ASTRAZENECA-2006UW23580

PATIENT
  Age: 50 Year
  Sex: Female
  Weight: 59.1 kg

DRUGS (17)
  1. SEROQUEL [Suspect]
     Route: 048
     Dates: start: 20010101, end: 20060101
  2. SEROQUEL [Suspect]
     Dosage: 25 MG - 200 MG
     Route: 048
     Dates: start: 20010716
  3. RISPERDAL [Concomitant]
     Dates: start: 19990101
  4. PERPHENAZINE [Concomitant]
     Dates: start: 19730101
  5. CELEXA [Concomitant]
     Route: 048
     Dates: start: 19990715
  6. GLUCOVANCE [Concomitant]
     Dosage: 5/500 MG TWICE A DAY
     Dates: start: 20040513
  7. CLONAZEPAM [Concomitant]
     Dates: start: 20000721
  8. LASIX [Concomitant]
     Dosage: 20 MG - 40 MG
     Dates: start: 19990715
  9. LORAZEPAM [Concomitant]
  10. NEURONTIN [Concomitant]
     Route: 048
     Dates: start: 20011114
  11. NEURONTIN [Concomitant]
     Route: 048
     Dates: start: 20020621
  12. DILANTIN [Concomitant]
     Dosage: 100 MG- 200 MG
     Route: 048
     Dates: start: 19950920
  13. PHENOBARBITAL [Concomitant]
     Dosage: 60 MG - 160 MG
     Route: 048
     Dates: start: 19971227
  14. ZYRTEC [Concomitant]
     Dates: start: 20010716
  15. LAMICTAL [Concomitant]
     Dosage: 25 MG - 100 MG
     Dates: start: 20020728
  16. LANTUS [Concomitant]
     Route: 058
     Dates: start: 20050527
  17. LEXAPRO [Concomitant]
     Dates: start: 20050725

REACTIONS (5)
  - DIABETES MELLITUS [None]
  - DIABETES MELLITUS INADEQUATE CONTROL [None]
  - DIABETIC KETOACIDOSIS [None]
  - TYPE 1 DIABETES MELLITUS [None]
  - TYPE 2 DIABETES MELLITUS [None]
